FAERS Safety Report 9671208 (Version 3)
Quarter: 2014Q1

REPORT INFORMATION
  Report Type: Spontaneous
  Country: FR (occurrence: FR)
  Receive Date: 20131106
  Receipt Date: 20140106
  Transmission Date: 20141002
  Serious: Yes (Hospitalization)
  Sender: FDA-Public Use
  Company Number: FR-NOVOPROD-391527

PATIENT
  Age: 52 Year
  Sex: Female

DRUGS (10)
  1. NOVOMIX 30 FLEXPEN [Suspect]
     Indication: TYPE 2 DIABETES MELLITUS
     Dosage: 46 IU, QD (30+16)
     Route: 058
     Dates: start: 20130427, end: 20131030
  2. NOVOMIX 30 FLEXPEN [Suspect]
     Dosage: UNK
     Route: 065
     Dates: start: 20131030
  3. METFORMINE [Concomitant]
     Indication: TYPE 2 DIABETES MELLITUS
     Dosage: 2 G, QD
     Route: 048
  4. THERALENE [Concomitant]
     Indication: SLEEP DISORDER
     Dosage: 15 DROPS AT BEDTIME
     Route: 048
  5. LEVOTHYROX [Concomitant]
     Indication: HYPOTHYROIDISM
     Dosage: 25 ?G, QD
     Route: 048
     Dates: start: 20130608
  6. ATORVASTATINE                      /01326101/ [Concomitant]
     Indication: PROPHYLAXIS
     Dosage: 40 MG, QD
     Route: 048
  7. CALCIUM [Concomitant]
     Indication: OSTEOPOROSIS PROPHYLAXIS
     Dosage: CALCIUM 500
  8. BROMAZEPAM [Concomitant]
     Indication: ANXIETY DISORDER
     Dosage: AS NEEDED
     Route: 048
  9. COAPROVEL [Concomitant]
     Indication: HYPERTENSION
     Route: 048
  10. ZOPICLONE [Concomitant]
     Indication: SLEEP DISORDER
     Route: 048

REACTIONS (3)
  - Cerebrovascular accident [Recovering/Resolving]
  - Hypoglycaemia [Recovering/Resolving]
  - Liquid product physical issue [Unknown]
